FAERS Safety Report 9476350 (Version 2)
Quarter: 2013Q3

REPORT INFORMATION
  Report Type: Spontaneous
  Country: JP (occurrence: JP)
  Receive Date: 20130826
  Receipt Date: 20130828
  Transmission Date: 20140515
  Serious: Yes (Other)
  Sender: FDA-Public Use
  Company Number: JP-SHIRE-ALL1-2013-05674

PATIENT
  Age: 8 Decade
  Sex: Male

DRUGS (2)
  1. FOSRENOL [Suspect]
     Indication: PRODUCT USED FOR UNKNOWN INDICATION
     Dosage: 1500 MG, UNKNOWN (1500MG TOTAL DAILY DOSAGE)
     Route: 048
  2. REGPARA [Concomitant]
     Indication: PRODUCT USED FOR UNKNOWN INDICATION
     Dosage: 50 MG, UNKNOWN (50MG, UNKNOWN FREQUENCY, TOTAL DAILY DOSE=50MG)
     Route: 048

REACTIONS (1)
  - Loss of consciousness [Unknown]
